FAERS Safety Report 8547312-8 (Version None)
Quarter: 2012Q3

REPORT INFORMATION
  Report Type: 
  Country: None (occurrence: None)
  Receive Date: 20120727
  Receipt Date: 20120316
  Transmission Date: 20120928
  Serious: No
  Sender: FDA-Public Use
  Company Number: US-ASTRAZENECA-2012SE18472

PATIENT
  Age: 26 Year
  Sex: Female

DRUGS (4)
  1. LITHIUM CARBONATE [Concomitant]
  2. ZOLOFT [Concomitant]
  3. SEROQUEL XR [Suspect]
     Indication: BIPOLAR I DISORDER
     Route: 048
  4. SEROQUEL XR [Suspect]
     Route: 048

REACTIONS (1)
  - LABORATORY TEST ABNORMAL [None]
